FAERS Safety Report 17299492 (Version 1)
Quarter: 2020Q1

REPORT INFORMATION
  Report Type: Spontaneous
  Country: US (occurrence: US)
  Receive Date: 20200122
  Receipt Date: 20200122
  Transmission Date: 20200409
  Serious: No
  Sender: FDA-Public Use
  Company Number: US-ALLERGAN-1909207US

PATIENT
  Sex: Female

DRUGS (1)
  1. RESTASIS [Suspect]
     Active Substance: CYCLOSPORINE
     Indication: PRODUCT USED FOR UNKNOWN INDICATION
     Dosage: UNK
     Route: 047
     Dates: start: 201902

REACTIONS (6)
  - Pruritus [Not Recovered/Not Resolved]
  - Eye pain [Recovered/Resolved]
  - Accidental exposure to product [Unknown]
  - Product dose omission [Unknown]
  - Vision blurred [Recovered/Resolved]
  - Product container issue [Unknown]
